FAERS Safety Report 21224706 (Version 1)
Quarter: 2022Q3

REPORT INFORMATION
  Report Type: Spontaneous
  Country: US (occurrence: US)
  Receive Date: 20220817
  Receipt Date: 20220817
  Transmission Date: 20221027
  Serious: No
  Sender: FDA-Public Use
  Company Number: US-OTSUKA-2021_029025

PATIENT
  Age: 39 Year
  Sex: Female

DRUGS (4)
  1. ABILIFY [Suspect]
     Active Substance: ARIPIPRAZOLE
     Indication: Affective disorder
     Dosage: 20 MG
     Route: 065
     Dates: start: 2021, end: 2021
  2. RISPERDAL [Concomitant]
     Active Substance: RISPERIDONE
     Indication: Product used for unknown indication
     Dosage: UNK
     Route: 065
  3. AMITRIPTYLINE [Concomitant]
     Active Substance: AMITRIPTYLINE
     Indication: Product used for unknown indication
     Dosage: UNK
     Route: 065
  4. METFORMIN [Concomitant]
     Active Substance: METFORMIN HYDROCHLORIDE
     Indication: Product used for unknown indication
     Dosage: 500 MG, BID
     Route: 065

REACTIONS (3)
  - Memory impairment [Not Recovered/Not Resolved]
  - Blood glucose increased [Unknown]
  - Product use in unapproved indication [Unknown]
